FAERS Safety Report 4664047-2 (Version None)
Quarter: 2005Q2

REPORT INFORMATION
  Report Type: 
  Country: None (occurrence: None)
  Receive Date: 20050516
  Receipt Date: 20050429
  Transmission Date: 20051028
  Serious: Yes (Other)
  Sender: FDA-Public Use
  Company Number: USA-2004-0014650

PATIENT
  Sex: Female
  Weight: 55.3 kg

DRUGS (11)
  1. MORPHINE SULFATE [Suspect]
     Dosage: 60 MG, TID
  2. ZOFRAN [Concomitant]
  3. FIORICET [Concomitant]
  4. ACTIQ [Concomitant]
  5. ZONEGRAN [Concomitant]
  6. WELLBUTRIN [Concomitant]
  7. PERCODAN (HOMATROPINE TEREPHTHALATE, PHENACETIN, OXYCODONE TEREPHTHALA [Concomitant]
  8. ATARAX [Concomitant]
  9. AMBIEN [Concomitant]
  10. FLORINAL [Concomitant]
  11. ALPRAZOLAM [Concomitant]

REACTIONS (22)
  - ANXIETY [None]
  - CONSTRICTED AFFECT [None]
  - DECREASED APPETITE [None]
  - DEPRESSION [None]
  - DISTURBANCE IN ATTENTION [None]
  - DRUG EFFECT DECREASED [None]
  - FATIGUE [None]
  - FEELING ABNORMAL [None]
  - FEELING OF DESPAIR [None]
  - HEADACHE [None]
  - INSOMNIA [None]
  - MEMORY IMPAIRMENT [None]
  - NERVOUSNESS [None]
  - PAIN [None]
  - PALPITATIONS [None]
  - PANIC ATTACK [None]
  - PARANOID PERSONALITY DISORDER [None]
  - SOMNOLENCE [None]
  - SUICIDAL IDEATION [None]
  - TREMOR [None]
  - VISION BLURRED [None]
  - VISUAL ACUITY REDUCED [None]
